FAERS Safety Report 10005632 (Version 2)
Quarter: 2014Q2

REPORT INFORMATION
  Report Type: Report from Study
  Country: US (occurrence: US)
  Receive Date: 20140313
  Receipt Date: 20140516
  Transmission Date: 20141212
  Serious: Yes (Hospitalization, Other)
  Sender: FDA-Public Use
  Company Number: US-ROCHE-1363916

PATIENT
  Sex: Female
  Weight: 66 kg

DRUGS (5)
  1. LUCENTIS [Suspect]
     Indication: MACULAR DEGENERATION
     Route: 050
  2. LUCENTIS [Suspect]
     Indication: DIABETIC RETINAL OEDEMA
  3. LOSARTAN [Concomitant]
  4. FUROSEMIDE [Concomitant]
  5. INSULIN [Concomitant]

REACTIONS (1)
  - Bronchopneumonia [Unknown]
